FAERS Safety Report 6231799-X (Version None)
Quarter: 2009Q2

REPORT INFORMATION
  Report Type: 
  Country: None (occurrence: None)
  Receive Date: 20090612
  Receipt Date: 20090605
  Transmission Date: 20091009
  Serious: Yes (Hospitalization)
  Sender: FDA-Public Use
  Company Number: 2009AL003721

PATIENT
  Age: 33 Year
  Sex: Female

DRUGS (4)
  1. CITALOPRAM HYDROBROMIDE [Suspect]
     Indication: DEPRESSION
     Dosage: 20 MG
  2. PEGYLATED INTERFERON ALFA-2A [Concomitant]
  3. BUPRENORPHINE HCL [Concomitant]
  4. QUETIAPINE FUMARATE [Concomitant]

REACTIONS (5)
  - ASTHENIA [None]
  - DISTURBANCE IN ATTENTION [None]
  - MANIA [None]
  - MENTAL DISORDER [None]
  - SEDATION [None]
